FAERS Safety Report 9207734 (Version 2)
Quarter: 2013Q2

REPORT INFORMATION
  Report Type: Spontaneous
  Country: US (occurrence: US)
  Receive Date: 20130403
  Receipt Date: 20130521
  Transmission Date: 20140414
  Serious: Yes (Disabling)
  Sender: FDA-Public Use
  Company Number: US-PFIZER INC-2013105490

PATIENT
  Age: 36 Year
  Sex: Female
  Weight: 87 kg

DRUGS (12)
  1. LYRICA [Suspect]
     Indication: FIBROMYALGIA
     Dosage: UNKN
  2. NEURONTIN [Suspect]
     Indication: FIBROMYALGIA
     Dosage: UNK
  3. ELMIRON [Concomitant]
     Indication: CYSTITIS INTERSTITIAL
     Dosage: UNK
  4. CIPRO [Concomitant]
     Indication: URINARY TRACT INFECTION
     Dosage: UNK
  5. OXYBUTYNIN CHLORIDE [Concomitant]
     Indication: CYSTITIS INTERSTITIAL
     Dosage: UNK
  6. WELLBUTRIN [Concomitant]
     Indication: DEPRESSION
     Dosage: UNK
  7. FLOMAX [Concomitant]
     Indication: CYSTITIS INTERSTITIAL
     Dosage: UNK
  8. AMBIEN [Concomitant]
     Indication: SLEEP DISORDER
     Dosage: UNK
  9. HYDROXYZINE [Concomitant]
     Indication: ANXIETY
     Dosage: UNK
  10. TRAMADOL [Concomitant]
     Indication: PAIN
     Dosage: UNK,AS NEEDED
  11. HYDROCODONE [Concomitant]
     Indication: PAIN
     Dosage: UNK,AS NEEDED
  12. FLEXERIL [Concomitant]
     Indication: PAIN
     Dosage: UNK, AS NEEDED

REACTIONS (1)
  - Impaired work ability [Not Recovered/Not Resolved]
